FAERS Safety Report 16830945 (Version 1)
Quarter: 2019Q3

REPORT INFORMATION
  Report Type: Spontaneous
  Country: FR (occurrence: FR)
  Receive Date: 20190920
  Receipt Date: 20190920
  Transmission Date: 20191005
  Serious: Yes (Death)
  Sender: FDA-Public Use
  Company Number: FR-TEVA-2019-FR-1110261

PATIENT
  Age: 85 Year
  Sex: Female
  Weight: 72 kg

DRUGS (9)
  1. CLOPIDOGREL (CHLORHYDRATE DE) [Suspect]
     Active Substance: CLOPIDOGREL HYDROCHLORIDE
     Indication: THROMBOSIS PROPHYLAXIS
     Route: 048
     Dates: end: 20180129
  2. LEVOTHYROX [Concomitant]
     Active Substance: LEVOTHYROXINE
  3. COUMADINE [Interacting]
     Active Substance: WARFARIN SODIUM
     Indication: THROMBOSIS PROPHYLAXIS
     Dosage: 5 MG
     Route: 048
     Dates: end: 20180129
  4. LOXEN [Concomitant]
  5. FUROSEMIDE. [Concomitant]
     Active Substance: FUROSEMIDE
  6. ATORVASTATINE [Concomitant]
     Active Substance: ATORVASTATIN
  7. CORDARONE [Concomitant]
     Active Substance: AMIODARONE HYDROCHLORIDE
     Dates: end: 20180129
  8. MACROGOL (STEARATE DE) [Concomitant]
  9. BISOPROLOL (HEMIFUMARATE DE) [Concomitant]
     Active Substance: BISOPROLOL FUMARATE

REACTIONS (2)
  - Cerebral haemorrhage [Fatal]
  - Drug interaction [Unknown]

NARRATIVE: CASE EVENT DATE: 20190129
